FAERS Safety Report 4771270-5 (Version None)
Quarter: 2005Q3

REPORT INFORMATION
  Report Type: 
  Country: None (occurrence: None)
  Receive Date: 20050915
  Receipt Date: 20050908
  Transmission Date: 20060218
  Serious: Yes (Other)
  Sender: FDA-Public Use
  Company Number: JP-MERCK-0509USA01037

PATIENT
  Age: 70 Year
  Sex: Female

DRUGS (4)
  1. SINGULAIR [Suspect]
     Indication: BRONCHITIS CHRONIC
     Route: 048
     Dates: start: 20050705, end: 20050905
  2. ALIARON [Concomitant]
     Route: 048
     Dates: start: 20050703
  3. MUCODYNE [Concomitant]
     Route: 048
     Dates: start: 20040730
  4. BROMHEXINE HYDROCHLORIDE [Concomitant]
     Route: 048
     Dates: start: 20050730

REACTIONS (1)
  - RHABDOMYOLYSIS [None]
